FAERS Safety Report 13721286 (Version 1)
Quarter: 2017Q3

REPORT INFORMATION
  Report Type: Spontaneous
  Country: US (occurrence: US)
  Receive Date: 20170705
  Receipt Date: 20170705
  Transmission Date: 20171127
  Serious: Yes (Hospitalization)
  Sender: FDA-Public Use
  Company Number: None

PATIENT
  Age: 56 Year
  Sex: Female
  Weight: 120 kg

DRUGS (5)
  1. KLONOPIN [Suspect]
     Active Substance: CLONAZEPAM
     Indication: ANXIETY
     Dosage: ?          OTHER STRENGTH:MG;?
     Route: 048
     Dates: start: 20070801, end: 20170403
  2. KLONOPIN [Suspect]
     Active Substance: CLONAZEPAM
     Indication: PAIN
     Dosage: ?          OTHER STRENGTH:MG;?
     Route: 048
     Dates: start: 20070801, end: 20170403
  3. MACROBID [Concomitant]
     Active Substance: NITROFURANTOIN\NITROFURANTOIN MONOHYDRATE
  4. KLONOPIN [Suspect]
     Active Substance: CLONAZEPAM
     Indication: MUSCLE TIGHTNESS
     Dosage: ?          OTHER STRENGTH:MG;?
     Route: 048
     Dates: start: 20070801, end: 20170403
  5. MULTIVITAMIN [Concomitant]
     Active Substance: VITAMINS

REACTIONS (5)
  - Cognitive disorder [None]
  - Lethargy [None]
  - Drug withdrawal syndrome [None]
  - Decreased appetite [None]
  - Depressed level of consciousness [None]

NARRATIVE: CASE EVENT DATE: 20140324
